FAERS Safety Report 11894776 (Version 1)
Quarter: 2016Q1

REPORT INFORMATION
  Report Type: Spontaneous
  Country: US (occurrence: US)
  Receive Date: 20160107
  Receipt Date: 20160107
  Transmission Date: 20160526
  Serious: No
  Sender: FDA-Public Use
  Company Number: US-DRREDDYS-USA/USA/15/0049431

PATIENT
  Sex: Male

DRUGS (2)
  1. HABITROL [Suspect]
     Active Substance: NICOTINE
     Indication: SMOKING CESSATION THERAPY
     Route: 062
  2. HABITROL [Suspect]
     Active Substance: NICOTINE
     Route: 062

REACTIONS (7)
  - Hyperhidrosis [Not Recovered/Not Resolved]
  - Drug withdrawal syndrome [Not Recovered/Not Resolved]
  - Product quality issue [Unknown]
  - Malaise [Not Recovered/Not Resolved]
  - Sleep disorder [Not Recovered/Not Resolved]
  - Nicotine dependence [Recovered/Resolved]
  - Hypertension [Not Recovered/Not Resolved]
